FAERS Safety Report 7953228-8 (Version None)
Quarter: 2011Q4

REPORT INFORMATION
  Report Type: 
  Country: None (occurrence: None)
  Receive Date: 20111201
  Receipt Date: 20111130
  Transmission Date: 20120403
  Serious: Yes (Other)
  Sender: FDA-Public Use
  Company Number: DE-MERCK-1111DEU00156

PATIENT
  Age: 72 Year
  Sex: Female
  Weight: 65 kg

DRUGS (6)
  1. ZOCOR [Suspect]
     Route: 048
     Dates: start: 20110929, end: 20111014
  2. TICAGRELOR [Suspect]
     Indication: CORONARY ARTERY DISEASE
     Route: 048
     Dates: start: 20110929, end: 20111020
  3. METOPROLOL [Concomitant]
     Indication: CORONARY ARTERY DISEASE
     Route: 048
     Dates: start: 20110929, end: 20111020
  4. HYDROCHLOROTHIAZIDE AND RAMIPRIL [Concomitant]
     Indication: HYPERTENSION
     Route: 048
     Dates: start: 20110929, end: 20111020
  5. RAMIPRIL [Concomitant]
     Indication: HYPERTENSION
     Route: 048
     Dates: start: 20110929, end: 20111020
  6. ASPIRIN [Concomitant]
     Indication: CORONARY ARTERY DISEASE
     Route: 048
     Dates: start: 20110929, end: 20111020

REACTIONS (2)
  - HEPATIC FUNCTION ABNORMAL [None]
  - DRUG INTERACTION [None]
